FAERS Safety Report 8941780 (Version 2)
Quarter: 2013Q1

REPORT INFORMATION
  Report Type: Spontaneous
  Country: FR (occurrence: FR)
  Receive Date: 20121203
  Receipt Date: 20130222
  Transmission Date: 20140127
  Serious: Yes (Other)
  Sender: FDA-Public Use
  Company Number: FR-NOVOPROD-365051

PATIENT
  Age: 32 Year
  Sex: Female
  Weight: 88 kg

DRUGS (2)
  1. LEVEMIR [Suspect]
     Indication: GESTATIONAL DIABETES
     Dosage: 8 IU, QD
     Route: 058
     Dates: start: 20120928, end: 20121103
  2. PROPESS [Concomitant]

REACTIONS (2)
  - Foetal death [Unknown]
  - Exposure during pregnancy [Unknown]
